FAERS Safety Report 9521641 (Version 4)
Quarter: 2013Q4

REPORT INFORMATION
  Report Type: Report from Study
  Country: PL (occurrence: PL)
  Receive Date: 20130913
  Receipt Date: 20131030
  Transmission Date: 20140711
  Serious: Yes (Hospitalization, Other)
  Sender: FDA-Public Use
  Company Number: PL-ASTELLAS-2013US007345

PATIENT
  Age: 3 Year
  Sex: Male
  Weight: 25 kg

DRUGS (1)
  1. TACROLIMUS OINTMENT [Suspect]
     Indication: DERMATITIS ATOPIC
     Dosage: 0.03 %, UID/QD
     Route: 061
     Dates: start: 200907

REACTIONS (5)
  - Respiratory tract infection [Recovered/Resolved]
  - Adenoidectomy [Recovered/Resolved]
  - Chronic sinusitis [Recovered/Resolved]
  - Sinus headache [Recovered/Resolved]
  - Chronic sinusitis [Recovered/Resolved]
